FAERS Safety Report 9080072 (Version 1)
Quarter: 2013Q1

REPORT INFORMATION
  Report Type: Spontaneous
  Country: IT (occurrence: IT)
  Receive Date: 20130130
  Receipt Date: 20130130
  Transmission Date: 20140127
  Serious: Yes (Other)
  Sender: FDA-Public Use
  Company Number: PHHY2013IT007358

PATIENT
  Age: 67 Year
  Sex: Male

DRUGS (6)
  1. METFORMIN [Suspect]
     Indication: HYPERGLYCAEMIA
  2. TESAVEL [Concomitant]
  3. GLIBOMET [Concomitant]
  4. NORVASC [Concomitant]
  5. NEBILOX [Concomitant]
  6. KARVEZIDE [Concomitant]

REACTIONS (1)
  - Coeliac disease [Not Recovered/Not Resolved]
